FAERS Safety Report 16890386 (Version 1)
Quarter: 2019Q4

REPORT INFORMATION
  Report Type: Spontaneous
  Country: US (occurrence: US)
  Receive Date: 20191007
  Receipt Date: 20191007
  Transmission Date: 20200122
  Serious: Yes (Other)
  Sender: FDA-Public Use
  Company Number: US-GILEAD-2019-0431874

PATIENT
  Age: 68 Year
  Sex: Male

DRUGS (5)
  1. HARVONI [Suspect]
     Active Substance: LEDIPASVIR\SOFOSBUVIR
     Indication: CHRONIC HEPATITIS C
     Dosage: 1 DOSAGE FORM, QD
     Route: 048
     Dates: start: 201902
  2. PROPRANOLOL HYDROCHLORIDE. [Concomitant]
     Active Substance: PROPRANOLOL HYDROCHLORIDE
  3. RIFAXIMIN. [Concomitant]
     Active Substance: RIFAXIMIN
  4. LACTULOSE. [Concomitant]
     Active Substance: LACTULOSE
  5. IMATINIB MESILATE [Concomitant]
     Active Substance: IMATINIB MESYLATE

REACTIONS (2)
  - Hepatitis C [Unknown]
  - Treatment failure [Unknown]
